FAERS Safety Report 9743294 (Version 2)
Quarter: 2013Q4

REPORT INFORMATION
  Report Type: Spontaneous
  Country: US (occurrence: US)
  Receive Date: 20131210
  Receipt Date: 20131210
  Transmission Date: 20140711
  Serious: Yes (Other)
  Sender: FDA-Public Use
  Company Number: US-GILEAD-2009-0026008

PATIENT
  Sex: Male
  Weight: 74.1 kg

DRUGS (23)
  1. LETAIRIS [Suspect]
     Indication: PULMONARY ARTERIAL HYPERTENSION
     Route: 048
     Dates: start: 20091023, end: 20091214
  2. CARDIZEM [Concomitant]
  3. PLAVIX [Concomitant]
  4. LIPITOR [Concomitant]
  5. SPIRIVA [Concomitant]
  6. ADVAIR DISKUS [Concomitant]
  7. ALBUTEROL [Concomitant]
  8. LYRICA [Concomitant]
  9. CELEBREX [Concomitant]
  10. TYLENOL PM [Concomitant]
  11. LORTAB [Concomitant]
  12. FLEXERIL [Concomitant]
  13. APRISO [Concomitant]
  14. TETRACYCLINE [Concomitant]
  15. SONATA [Concomitant]
  16. NEXIUM [Concomitant]
  17. CENTRUM MULTIVITAMIN [Concomitant]
  18. VITAMIN C/VITAMIN E [Concomitant]
  19. VITAMIN E [Concomitant]
  20. SUPER B COMPLEX [Concomitant]
  21. B-12 [Concomitant]
  22. CO Q10 [Concomitant]
  23. OMEGA-3 [Concomitant]

REACTIONS (1)
  - Drug ineffective [Recovering/Resolving]
